FAERS Safety Report 7015640-3 (Version None)
Quarter: 2010Q3

REPORT INFORMATION
  Report Type: 
  Country: None (occurrence: None)
  Receive Date: 20100927
  Receipt Date: 20100922
  Transmission Date: 20110219
  Serious: Yes (Hospitalization)
  Sender: FDA-Public Use
  Company Number: IT-BAYER-201040410GPV

PATIENT
  Age: 46 Year
  Sex: Female

DRUGS (2)
  1. CARDIOASPIRIN [Suspect]
     Indication: CEREBRAL ISCHAEMIA
     Route: 048
     Dates: start: 20100829, end: 20100917
  2. ESOPRAL [Concomitant]
     Route: 048
     Dates: start: 20100829

REACTIONS (8)
  - ANAPHYLACTIC REACTION [None]
  - DYSPNOEA [None]
  - GENERALISED ERYTHEMA [None]
  - HYPERHIDROSIS [None]
  - HYPOTENSION [None]
  - LARYNGEAL DISORDER [None]
  - SYNCOPE [None]
  - TACHYCARDIA [None]
